FAERS Safety Report 24913114 (Version 1)
Quarter: 2025Q1

REPORT INFORMATION
  Report Type: Spontaneous
  Country: CN (occurrence: CN)
  Receive Date: 20250201
  Receipt Date: 20250201
  Transmission Date: 20250409
  Serious: Yes (Life-Threatening, Hospitalization, Other)
  Sender: MSN LABORATORIES PRIVATE LIMITED
  Company Number: CN-MSNLABS-2025MSNLIT00201

PATIENT

DRUGS (1)
  1. CAPECITABINE [Suspect]
     Active Substance: CAPECITABINE
     Indication: Rectal adenocarcinoma
     Dosage: DOSING 825MG/M2, 1.5G ORALLY TWICE A DAY (P.O.) BID D1-5/W
     Route: 048

REACTIONS (14)
  - Mouth ulceration [Recovered/Resolved]
  - Feeding disorder [Recovered/Resolved]
  - Productive cough [Recovered/Resolved]
  - Mental disorder [Recovered/Resolved]
  - Listless [Recovered/Resolved]
  - Haematochezia [Recovered/Resolved]
  - White blood cell count decreased [Recovered/Resolved]
  - Neutrophil count decreased [Recovered/Resolved]
  - Diarrhoea [Recovered/Resolved]
  - Pyrexia [Recovered/Resolved]
  - Nausea [Recovered/Resolved]
  - Vomiting [Recovered/Resolved]
  - Myelosuppression [Recovered/Resolved]
  - Coagulopathy [Recovered/Resolved]
